FAERS Safety Report 20652331 (Version 1)
Quarter: 2022Q1

REPORT INFORMATION
  Report Type: Spontaneous
  Country: US (occurrence: US)
  Receive Date: 20220330
  Receipt Date: 20220330
  Transmission Date: 20220423
  Serious: Yes (Hospitalization, Other)
  Sender: FDA-Public Use
  Company Number: US-APOTEX-2022AP005264

PATIENT
  Age: 36 Year
  Sex: Male

DRUGS (21)
  1. ATOVAQUONE [Suspect]
     Active Substance: ATOVAQUONE
     Indication: Babesiosis
     Dosage: 750 MILLIGRAM, QD
     Route: 065
     Dates: start: 20190109
  2. ATOVAQUONE [Suspect]
     Active Substance: ATOVAQUONE
     Dosage: 750 MILLIGRAM, BID
     Route: 065
     Dates: start: 20190329
  3. ATOVAQUONE [Suspect]
     Active Substance: ATOVAQUONE
     Dosage: 750 MILLIGRAM, BID
     Route: 065
     Dates: start: 20190828
  4. ATOVAQUONE [Suspect]
     Active Substance: ATOVAQUONE
     Dosage: 750 MILLIGRAM, BID
     Route: 065
     Dates: start: 20190917
  5. ATOVAQUONE [Suspect]
     Active Substance: ATOVAQUONE
     Dosage: 750 MILLIGRAM, QD
     Route: 065
     Dates: start: 20191001, end: 20191114
  6. ATOVAQUONE [Suspect]
     Active Substance: ATOVAQUONE
     Dosage: 750 MILLIGRAM, BID
     Route: 065
     Dates: start: 20191213, end: 20200128
  7. ATOVAQUONE [Suspect]
     Active Substance: ATOVAQUONE
     Dosage: 750 MILLIGRAM, QD
     Route: 065
     Dates: start: 20200129, end: 20200309
  8. AZITHROMYCIN [Suspect]
     Active Substance: AZITHROMYCIN
     Indication: Babesiosis
     Dosage: 500 MILLIGRAM, SINGLE
     Route: 042
     Dates: start: 20190109
  9. AZITHROMYCIN [Suspect]
     Active Substance: AZITHROMYCIN
     Dosage: 500 MILLIGRAM, QD
     Route: 065
     Dates: start: 20190110
  10. AZITHROMYCIN [Suspect]
     Active Substance: AZITHROMYCIN
     Dosage: 250 MILLIGRAM, QD
     Route: 065
     Dates: start: 20190116
  11. AZITHROMYCIN [Suspect]
     Active Substance: AZITHROMYCIN
     Dosage: 500 MILLIGRAM, QD
     Route: 065
     Dates: start: 20190329
  12. AZITHROMYCIN [Suspect]
     Active Substance: AZITHROMYCIN
     Dosage: 500 MILLIGRAM, QD
     Route: 065
     Dates: start: 20190828
  13. AZITHROMYCIN [Suspect]
     Active Substance: AZITHROMYCIN
     Dosage: 500 MILLIGRAM, QD
     Route: 065
     Dates: start: 20190917
  14. AZITHROMYCIN [Suspect]
     Active Substance: AZITHROMYCIN
     Dosage: 500 MILLIGRAM, QD
     Route: 065
     Dates: start: 20191001, end: 20191114
  15. AZITHROMYCIN [Suspect]
     Active Substance: AZITHROMYCIN
     Dosage: 500 MILLIGRAM, QD
     Route: 065
     Dates: start: 20191213, end: 20200128
  16. AZITHROMYCIN [Suspect]
     Active Substance: AZITHROMYCIN
     Dosage: 1000 MILLIGRAM, QD
     Route: 065
     Dates: start: 20200129, end: 20200309
  17. CLINDAMYCIN [Suspect]
     Active Substance: CLINDAMYCIN
     Indication: Babesiosis
     Dosage: 300 MILLIGRAM, TID
     Route: 048
     Dates: start: 20190917
  18. CLINDAMYCIN [Suspect]
     Active Substance: CLINDAMYCIN
     Dosage: 450 MILLIGRAM, TID
     Route: 048
     Dates: start: 20200129, end: 20200309
  19. MALARONE [Suspect]
     Active Substance: ATOVAQUONE\PROGUANIL HYDROCHLORIDE
     Indication: Babesiosis
     Dosage: 4 DOSAGE FORM, QD
     Route: 065
     Dates: start: 20200129, end: 20200309
  20. PREDNISONE [Concomitant]
     Active Substance: PREDNISONE
     Indication: Granulomatosis with polyangiitis
     Dosage: 7.5 MILLIGRAM, QD
     Route: 065
  21. PREDNISONE [Concomitant]
     Active Substance: PREDNISONE
     Dosage: 20 MILLIGRAM, QD
     Route: 065

REACTIONS (5)
  - Babesiosis [Recovered/Resolved]
  - Infection [Recovered/Resolved]
  - Multiple-drug resistance [Unknown]
  - Diarrhoea [Unknown]
  - Nausea [Unknown]

NARRATIVE: CASE EVENT DATE: 20190329
